FAERS Safety Report 4345739-1 (Version None)
Quarter: 2004Q2

REPORT INFORMATION
  Report Type: 
  Country: None (occurrence: None)
  Receive Date: 20040421
  Receipt Date: 20040413
  Transmission Date: 20050107
  Serious: Yes (Hospitalization)
  Sender: FDA-Public Use
  Company Number: SE-JNJFOC-20040402489

PATIENT
  Sex: Female

DRUGS (1)
  1. REMICADE [Suspect]
     Indication: DRUG USE FOR UNKNOWN INDICATION
     Dosage: 200 MG, INTRAVENOUS
     Route: 042
     Dates: start: 20031125

REACTIONS (2)
  - CARDIAC FAILURE [None]
  - UPPER RESPIRATORY TRACT INFECTION [None]
